FAERS Safety Report 19673105 (Version 2)
Quarter: 2021Q3

REPORT INFORMATION
  Report Type: Spontaneous
  Country: IT (occurrence: IT)
  Receive Date: 20210809
  Receipt Date: 20210811
  Transmission Date: 20211014
  Serious: Yes (Death)
  Sender: FDA-Public Use
  Company Number: IT-CELLTRION INC.-2021IT010440

PATIENT

DRUGS (20)
  1. VALPROATE [Concomitant]
     Active Substance: VALPROIC ACID
  2. LIDOCAIN (LIDOCAINE) [Concomitant]
     Indication: STATUS EPILEPTICUS
     Route: 042
  3. CARBAMAZEPINE. [Concomitant]
     Active Substance: CARBAMAZEPINE
  4. KETAMINE [Concomitant]
     Active Substance: KETAMINE
     Indication: STATUS EPILEPTICUS
     Route: 042
  5. RITUXIMAB (UNKNOWN) [Suspect]
     Active Substance: RITUXIMAB
     Indication: ENCEPHALITIS AUTOIMMUNE
     Dosage: SECOND LINE TREATMENT
     Route: 065
  6. THIOPENTAL [Concomitant]
     Active Substance: THIOPENTAL
     Dosage: 2?5 MG/KG/HOUR
  7. LEVETIRACETAM. [Concomitant]
     Active Substance: LEVETIRACETAM
  8. BORTEZOMIB. [Suspect]
     Active Substance: BORTEZOMIB
     Indication: ENCEPHALITIS AUTOIMMUNE
     Dosage: SECOND LINE TREATMENT
  9. PHENYTOIN. [Concomitant]
     Active Substance: PHENYTOIN
  10. SIROLIMUS. [Concomitant]
     Active Substance: SIROLIMUS
  11. ANAKINRA [Suspect]
     Active Substance: ANAKINRA
     Indication: ENCEPHALITIS AUTOIMMUNE
     Dosage: SECOND LINE TREATMENT
  12. BORTEZOMIB. [Concomitant]
     Active Substance: BORTEZOMIB
  13. LACOSAMIDE. [Concomitant]
     Active Substance: LACOSAMIDE
  14. LACOSAMIDE. [Concomitant]
     Active Substance: LACOSAMIDE
  15. PHENOBARBITAL. [Concomitant]
     Active Substance: PHENOBARBITAL
  16. SIROLIMUS. [Suspect]
     Active Substance: SIROLIMUS
     Indication: ENCEPHALITIS AUTOIMMUNE
     Dosage: SECOND LINE TREATMENT
  17. PERAMPANEL [Concomitant]
     Active Substance: PERAMPANEL
  18. MIDAZOLAM. [Concomitant]
     Active Substance: MIDAZOLAM
     Indication: STATUS EPILEPTICUS
     Route: 042
  19. CLOBAZAM. [Concomitant]
     Active Substance: CLOBAZAM
  20. TOPIRAMATE. [Concomitant]
     Active Substance: TOPIRAMATE

REACTIONS (3)
  - Septic shock [Fatal]
  - Off label use [Unknown]
  - Necrotising colitis [Fatal]
